FAERS Safety Report 13089239 (Version 2)
Quarter: 2017Q1

REPORT INFORMATION
  Report Type: Spontaneous
  Country: FR (occurrence: FR)
  Receive Date: 20170105
  Receipt Date: 20170112
  Transmission Date: 20170428
  Serious: Yes (Other)
  Sender: FDA-Public Use
  Company Number: FR-PFIZER INC-2017000272

PATIENT
  Age: 84 Year
  Sex: Female

DRUGS (9)
  1. RAMIPRIL. [Suspect]
     Active Substance: RAMIPRIL
     Dosage: UNK
     Route: 048
     Dates: start: 20161216
  2. DOLIPRANE [Concomitant]
     Active Substance: ACETAMINOPHEN
     Dosage: UNK
  3. BISOPROLOL [Suspect]
     Active Substance: BISOPROLOL
     Dosage: UNK
     Route: 048
     Dates: start: 20161216
  4. DUOPLAVIN [Suspect]
     Active Substance: ASPIRIN\CLOPIDOGREL
     Dosage: UNK
     Route: 048
     Dates: start: 20161216
  5. MOVICOL [Concomitant]
     Active Substance: POLYETHYLENE GLYCOL 3350\POTASSIUM CHLORIDE\SODIUM BICARBONATE\SODIUM CHLORIDE
     Dosage: UNK
  6. LYRICA [Concomitant]
     Active Substance: PREGABALIN
     Dosage: UNK
  7. TAHOR [Suspect]
     Active Substance: ATORVASTATIN CALCIUM
     Dosage: UNK
     Route: 048
     Dates: start: 20161216
  8. SERESTA [Suspect]
     Active Substance: OXAZEPAM
     Dosage: UNK
     Route: 048
     Dates: start: 20161216
  9. PANTOPRAZOLE [Concomitant]
     Active Substance: PANTOPRAZOLE SODIUM
     Dosage: UNK

REACTIONS (2)
  - Rash [Not Recovered/Not Resolved]
  - Pruritus [Not Recovered/Not Resolved]

NARRATIVE: CASE EVENT DATE: 20161222
